FAERS Safety Report 6665687-1 (Version None)
Quarter: 2010Q2

REPORT INFORMATION
  Report Type: 
  Country: None (occurrence: None)
  Receive Date: 20100402
  Receipt Date: 20100330
  Transmission Date: 20101027
  Serious: Yes (Hospitalization, Other)
  Sender: FDA-Public Use
  Company Number: US-ELI_LILLY_AND_COMPANY-US201003008539

PATIENT
  Sex: Male

DRUGS (3)
  1. BYETTA [Suspect]
  2. ACTOS /SCH/ [Concomitant]
  3. GLUCOPHAGE [Concomitant]

REACTIONS (2)
  - OFF LABEL USE [None]
  - PNEUMONIA [None]
